FAERS Safety Report 17200892 (Version 1)
Quarter: 2019Q4

REPORT INFORMATION
  Report Type: Spontaneous
  Country: FR (occurrence: FR)
  Receive Date: 20191226
  Receipt Date: 20191226
  Transmission Date: 20200122
  Serious: No
  Sender: FDA-Public Use
  Company Number: FR-TOLMAR, INC.-19FR000934

PATIENT
  Age: 75 Year
  Sex: Male

DRUGS (4)
  1. VESICARE [Suspect]
     Active Substance: SOLIFENACIN SUCCINATE
     Indication: URINARY INCONTINENCE
     Dosage: 5 MG, QD, IN THE MORNING
     Route: 048
     Dates: start: 20190415, end: 20190510
  2. ELIGARD [Suspect]
     Active Substance: LEUPROLIDE ACETATE
     Dosage: 22.5 MG, Q3MONTHS
     Route: 058
     Dates: start: 20190131
  3. TAMSULOSIN [Suspect]
     Active Substance: TAMSULOSIN
     Indication: BENIGN PROSTATIC HYPERPLASIA
     Dosage: 0.4 MG, UNK
     Route: 048
     Dates: start: 20191023
  4. ELIGARD [Suspect]
     Active Substance: LEUPROLIDE ACETATE
     Indication: PROSTATE CANCER
     Dosage: 22.5 MG, Q3MONTHS
     Route: 058
     Dates: start: 20190427

REACTIONS (10)
  - Constipation [Recovered/Resolved]
  - Hot flush [Not Recovered/Not Resolved]
  - Flatulence [Recovered/Resolved]
  - Malaise [Unknown]
  - Diarrhoea [Recovered/Resolved]
  - Product dispensing error [Unknown]
  - Abdominal pain upper [Unknown]
  - Drug ineffective for unapproved indication [Unknown]
  - Bone pain [Not Recovered/Not Resolved]
  - Fatigue [Not Recovered/Not Resolved]

NARRATIVE: CASE EVENT DATE: 201902
